FAERS Safety Report 9782333 (Version 2)
Quarter: 2014Q1

REPORT INFORMATION
  Report Type: Spontaneous
  Country: US (occurrence: US)
  Receive Date: 20131226
  Receipt Date: 20140107
  Transmission Date: 20141002
  Serious: Yes (Other)
  Sender: FDA-Public Use
  Company Number: US-BAYER-2013-153957

PATIENT
  Age: 78 Year
  Sex: Female
  Weight: 91 kg

DRUGS (2)
  1. ALEVE CAPLET [Suspect]
     Indication: BACK PAIN
     Dosage: 2 DF, QD
     Route: 048
     Dates: start: 2013, end: 201304
  2. MYCOPHENOLATE SODIUM [Concomitant]

REACTIONS (3)
  - Dermatitis bullous [Not Recovered/Not Resolved]
  - Unevaluable event [None]
  - Incorrect drug administration duration [None]
